FAERS Safety Report 10155980 (Version 1)
Quarter: 2014Q2

REPORT INFORMATION
  Report Type: Spontaneous
  Country: CO (occurrence: CO)
  Receive Date: 20140506
  Receipt Date: 20140506
  Transmission Date: 20141212
  Serious: Yes (Death)
  Sender: FDA-Public Use
  Company Number: CO-BAXTER-2014BAX021355

PATIENT
  Age: 1 Day
  Sex: Female
  Weight: 2.9 kg

DRUGS (1)
  1. DEXTROSA AL 10% USP [Suspect]
     Indication: POOR SUCKING REFLEX
     Route: 042
     Dates: start: 20140422, end: 20140422

REACTIONS (1)
  - Cardio-respiratory arrest [Fatal]
